FAERS Safety Report 5212799-5 (Version None)
Quarter: 2007Q1

REPORT INFORMATION
  Report Type: 
  Country: None (occurrence: None)
  Receive Date: 20070119
  Receipt Date: 20070116
  Transmission Date: 20070707
  Serious: Yes (Life-Threatening, Hospitalization)
  Sender: FDA-Public Use
  Company Number: PHBS2007NL01062

PATIENT
  Age: 41 Year
  Sex: Female

DRUGS (2)
  1. DICLOFENAC SODIUM [Suspect]
     Indication: SUICIDE ATTEMPT
     Dosage: 1500 MG, ONCE/SINGLE
  2. AMITRIPTYLINE HCL [Suspect]
     Indication: SUICIDE ATTEMPT
     Dosage: 11250 MG, ONCE/SINGLE

REACTIONS (21)
  - ALANINE AMINOTRANSFERASE INCREASED [None]
  - ASPARTATE AMINOTRANSFERASE INCREASED [None]
  - BLOOD CREATININE INCREASED [None]
  - BLOOD PH DECREASED [None]
  - COMA [None]
  - DRUG TOXICITY [None]
  - HEPATIC ENZYME INCREASED [None]
  - HYPOTHERMIA [None]
  - INTENTIONAL OVERDOSE [None]
  - MEAN ARTERIAL PRESSURE DECREASED [None]
  - METABOLIC ACIDOSIS [None]
  - MYDRIASIS [None]
  - PCO2 INCREASED [None]
  - PNEUMONIA [None]
  - PO2 DECREASED [None]
  - PULSE ABSENT [None]
  - PUPILLARY REFLEX IMPAIRED [None]
  - RESPIRATORY ACIDOSIS [None]
  - SHOCK [None]
  - VENTRICULAR FIBRILLATION [None]
  - VENTRICULAR TACHYCARDIA [None]
